FAERS Safety Report 16382069 (Version 1)
Quarter: 2019Q2

REPORT INFORMATION
  Report Type: Spontaneous
  Country: PL (occurrence: PL)
  Receive Date: 20190603
  Receipt Date: 20190603
  Transmission Date: 20190711
  Serious: Yes (Other)
  Sender: FDA-Public Use
  Company Number: PL-ACCORD-130185

PATIENT
  Age: 38 Year
  Sex: Male
  Weight: 68 kg

DRUGS (4)
  1. AVASTIN [Suspect]
     Active Substance: BEVACIZUMAB
     Indication: COLON CANCER
     Dosage: DOSE:680 (UNIT NOT SPECIFIED)
     Route: 042
     Dates: start: 20180611
  2. OXALIPLATIN ACCORD [Suspect]
     Active Substance: OXALIPLATIN
     Indication: COLON CANCER
     Dosage: DOSE:156 (UNIT NOT SPECIFIED), STRENGTH:  5 MG/ML
     Route: 042
     Dates: start: 20180611
  3. LEVOFOLINIC ACID [Suspect]
     Active Substance: LEVOLEUCOVORIN
     Indication: COLON CANCER
     Dosage: DOSE:368 (UNIT NOT SPECIFIED), STRENGTH:200 MG/4 ML
     Route: 042
     Dates: start: 20180611
  4. FLUOROURACIL. [Suspect]
     Active Substance: FLUOROURACIL
     Indication: COLON CANCER
     Dosage: DOSE:2944 (UNIT NOT SPECIFIED), STRENGTH: 5000MG/100ML
     Route: 042
     Dates: start: 20180611

REACTIONS (2)
  - Pyrexia [Recovering/Resolving]
  - Asthenia [Recovering/Resolving]

NARRATIVE: CASE EVENT DATE: 20181226
